FAERS Safety Report 9807342 (Version 2)
Quarter: 2014Q1

REPORT INFORMATION
  Report Type: Spontaneous
  Country: JP (occurrence: JP)
  Receive Date: 20140110
  Receipt Date: 20140206
  Transmission Date: 20141002
  Serious: Yes (Hospitalization)
  Sender: FDA-Public Use
  Company Number: JP-BRISTOL-MYERS SQUIBB COMPANY-19982776

PATIENT
  Age: 69 Year
  Sex: Female

DRUGS (16)
  1. METGLUCO [Suspect]
     Indication: DIABETES MELLITUS
     Route: 048
     Dates: start: 20131129, end: 20131227
  2. LIVALO [Concomitant]
     Indication: DYSLIPIDAEMIA
     Route: 048
     Dates: start: 2000
  3. GASTER D [Concomitant]
     Indication: GASTRITIS
     Route: 048
     Dates: start: 2000
  4. BAYASPIRIN [Concomitant]
     Route: 048
  5. ALESION [Concomitant]
     Indication: URTICARIA
     Route: 048
  6. MUCOSTA [Concomitant]
     Indication: GASTRITIS
     Route: 048
  7. KINEDAK [Concomitant]
     Indication: NEUROPATHY PERIPHERAL
     Route: 048
  8. JUVELA [Concomitant]
     Indication: NEUROPATHY PERIPHERAL
     Route: 048
  9. BASEN [Concomitant]
     Indication: DIABETES MELLITUS
     Route: 048
  10. ALLELOCK [Concomitant]
     Indication: URTICARIA
     Route: 048
  11. MAGNESIUM OXIDE [Concomitant]
     Route: 048
  12. DEPAKENE [Concomitant]
     Route: 048
  13. LUDIOMIL [Concomitant]
     Route: 048
  14. HALCION [Concomitant]
     Route: 048
  15. FRANDOL [Concomitant]
  16. NOVORAPID [Concomitant]
     Route: 058

REACTIONS (1)
  - Hepatic function abnormal [Recovering/Resolving]
